FAERS Safety Report 5460361-1 (Version None)
Quarter: 2007Q3

REPORT INFORMATION
  Report Type: 
  Country: None (occurrence: None)
  Receive Date: 20070402
  Receipt Date: 20070302
  Transmission Date: 20080115
  Serious: Yes (Hospitalization)
  Sender: FDA-Public Use
  Company Number: LIT-001-07-US

PATIENT
  Age: 29 Year
  Sex: Female

DRUGS (1)
  1. IMMUNE GLOBULIN INTRAVENOUS (HUMAN) [Suspect]
     Indication: MYOPATHY
     Dosage: OVER 3DAYS

REACTIONS (1)
  - MENINGITIS ASEPTIC [None]
